FAERS Safety Report 9222458 (Version 1)
Quarter: 2013Q2

REPORT INFORMATION
  Report Type: Report from Study
  Country: US (occurrence: US)
  Receive Date: 20130410
  Receipt Date: 20130410
  Transmission Date: 20140414
  Serious: No
  Sender: FDA-Public Use
  Company Number: US-VERTEX PHARMACEUTICALS INC.-2013-004588

PATIENT
  Age: 48 Year
  Sex: Male
  Weight: 95 kg

DRUGS (5)
  1. VX-950 (TELAPREVIR) [Suspect]
     Indication: HEPATITIS C
     Dosage: 750 MG, TID
     Route: 048
  2. RIBAVIRIN [Suspect]
     Indication: HEPATITIS C
  3. PEGASYS [Suspect]
     Indication: HEPATITIS C
  4. EXFORGE [Concomitant]
  5. CELEXA [Concomitant]

REACTIONS (2)
  - Cheilitis [Recovered/Resolved]
  - Drug ineffective [Not Recovered/Not Resolved]
